FAERS Safety Report 6785234-3 (Version None)
Quarter: 2010Q2

REPORT INFORMATION
  Report Type: 
  Country: None (occurrence: None)
  Receive Date: 20100622
  Receipt Date: 20100622
  Transmission Date: 20101027
  Serious: Yes (Other)
  Sender: FDA-Public Use
  Company Number: None

PATIENT
  Sex: Male
  Weight: 95.709 kg

DRUGS (1)
  1. PREDNISONE [Suspect]
     Indication: CHRONIC OBSTRUCTIVE PULMONARY DISEASE
     Dosage: 1 TABLET DAILY PO
     Route: 048
     Dates: start: 20100601, end: 20100619

REACTIONS (5)
  - BACTERIAL INFECTION [None]
  - CELLULITIS [None]
  - CONTUSION [None]
  - OEDEMA PERIPHERAL [None]
  - SKIN DISCOLOURATION [None]
